FAERS Safety Report 5923055-1 (Version None)
Quarter: 2008Q4

REPORT INFORMATION
  Report Type: 
  Country: None (occurrence: None)
  Receive Date: 20081018
  Receipt Date: 20081007
  Transmission Date: 20090506
  Serious: Yes (Other)
  Sender: FDA-Public Use
  Company Number: GB-PFIZER INC-2008084671

PATIENT
  Age: 75 Year
  Sex: Female

DRUGS (5)
  1. LINEZOLID [Suspect]
     Indication: INFECTION
  2. CIPROFLOXACIN [Suspect]
     Indication: INFECTION
  3. MEROPENEM [Suspect]
     Indication: INFECTION
  4. PRISTINAMYCIN [Suspect]
     Indication: INFECTION
  5. VANCOMYCIN HYDROCHLORIDE [Suspect]
     Indication: INFECTION

REACTIONS (1)
  - DRUG RESISTANCE [None]
